FAERS Safety Report 4712235-9 (Version None)
Quarter: 2005Q3

REPORT INFORMATION
  Report Type: 
  Country: None (occurrence: None)
  Receive Date: 20050712
  Receipt Date: 20050704
  Transmission Date: 20060218
  Serious: Yes (Other)
  Sender: FDA-Public Use
  Company Number: US-GLAXOSMITHKLINE-A0565045A

PATIENT
  Age: 32 Year
  Weight: 54.5 kg

DRUGS (5)
  1. LAMICTAL [Suspect]
     Indication: DRUG USE FOR UNKNOWN INDICATION
     Route: 048
  2. LITHIUM [Suspect]
     Indication: DRUG USE FOR UNKNOWN INDICATION
     Route: 065
  3. PAXIL [Concomitant]
     Route: 048
  4. ZYPREXA [Concomitant]
     Route: 065
  5. VALPROIC ACID [Concomitant]
     Route: 065

REACTIONS (4)
  - DISSOCIATION [None]
  - DRUG LEVEL BELOW THERAPEUTIC [None]
  - PERSONALITY CHANGE [None]
  - SUICIDAL IDEATION [None]
